FAERS Safety Report 4420608-7 (Version None)
Quarter: 2004Q3

REPORT INFORMATION
  Report Type: 
  Country: None (occurrence: None)
  Receive Date: 20040809
  Receipt Date: 20040409
  Transmission Date: 20050211
  Serious: No
  Sender: FDA-Public Use
  Company Number: US-GLAXOSMITHKLINE-A0506488A

PATIENT
  Sex: Female

DRUGS (5)
  1. PAXIL [Suspect]
     Indication: MAJOR DEPRESSION
     Dosage: 12.5MG PER DAY
     Route: 048
     Dates: start: 20040405
  2. PRILOSEC [Concomitant]
  3. XANAX [Concomitant]
  4. LIPITOR [Concomitant]
  5. PARNATE [Concomitant]

REACTIONS (3)
  - FATIGUE [None]
  - HYPERHIDROSIS [None]
  - NAUSEA [None]
